FAERS Safety Report 9607138 (Version 1)
Quarter: 2013Q4

REPORT INFORMATION
  Report Type: Spontaneous
  Country: US (occurrence: US)
  Receive Date: 20131009
  Receipt Date: 20131009
  Transmission Date: 20140711
  Serious: No
  Sender: FDA-Public Use
  Company Number: US-BIOGENIDEC-2013BI074298

PATIENT
  Sex: Female

DRUGS (5)
  1. AVONEX [Suspect]
     Indication: MULTIPLE SCLEROSIS
     Route: 030
     Dates: start: 20010711
  2. AVONEX [Suspect]
     Indication: MULTIPLE SCLEROSIS
     Route: 030
     Dates: start: 201203
  3. AMPYRA [Concomitant]
     Indication: GAIT DISTURBANCE
  4. ASPIRIN [Concomitant]
  5. VITAMIN D [Concomitant]

REACTIONS (13)
  - Progressive multiple sclerosis [Unknown]
  - Band sensation [Unknown]
  - Cataract operation [Unknown]
  - Blood pressure decreased [Unknown]
  - Hypertension [Unknown]
  - Osteoporosis [Unknown]
  - Spinal column stenosis [Unknown]
  - Blood cholesterol increased [Unknown]
  - Syncope [Unknown]
  - Hypothyroidism [Unknown]
  - Multiple sclerosis relapse [Unknown]
  - Fatigue [Unknown]
  - Drug ineffective [Unknown]
